FAERS Safety Report 6042709-2 (Version None)
Quarter: 2009Q1

REPORT INFORMATION
  Report Type: 
  Country: None (occurrence: None)
  Receive Date: 20090119
  Receipt Date: 20090112
  Transmission Date: 20090719
  Serious: Yes (Other)
  Sender: FDA-Public Use
  Company Number: US-TEVA-183599USA

PATIENT
  Age: 56 Year
  Sex: Female

DRUGS (1)
  1. ONXOL [Suspect]
     Indication: BREAST CANCER
     Dosage: 400 MG EVERY THREE WEEKS
     Route: 042

REACTIONS (1)
  - MACULAR OEDEMA [None]
